FAERS Safety Report 17768233 (Version 1)
Quarter: 2020Q2

REPORT INFORMATION
  Report Type: Spontaneous
  Country: US (occurrence: US)
  Receive Date: 20200511
  Receipt Date: 20200511
  Transmission Date: 20200714
  Serious: Yes (Death, Hospitalization)
  Sender: FDA-Public Use
  Company Number: US-ENDO PHARMACEUTICALS INC-2020-003618

PATIENT
  Age: 28 Year
  Sex: Male

DRUGS (18)
  1. MIDAZOLAM. [Suspect]
     Active Substance: MIDAZOLAM
     Indication: STATUS EPILEPTICUS
     Dosage: 2.9 MG/KG/HOUR, INFUSION, DAY NINE
     Route: 065
  2. KETALAR [Suspect]
     Active Substance: KETAMINE HYDROCHLORIDE
     Dosage: 7 MG/KG/HOUR, INFUSION, MAXIMUM DOSE, OVER TWO DAYS
     Route: 065
  3. MIDAZOLAM. [Suspect]
     Active Substance: MIDAZOLAM
     Dosage: 3.1 MG/KG/HOUR, INFUSION, MAXIMUM DOSE,  OVER TWO DAYS
     Route: 065
  4. LEVETIRACETAM. [Concomitant]
     Active Substance: LEVETIRACETAM
     Indication: STATUS EPILEPTICUS
  5. PHENOBARBITAL. [Concomitant]
     Active Substance: PHENOBARBITAL
     Indication: EPILEPSY
  6. VIGABATRIN. [Concomitant]
     Active Substance: VIGABATRIN
     Indication: EPILEPSY
  7. ALLOPREGNANOLONE [Concomitant]
     Active Substance: BREXANOLONE
     Indication: STATUS EPILEPTICUS
  8. TOPIRAMATE. [Concomitant]
     Active Substance: TOPIRAMATE
     Indication: EPILEPSY
  9. MIDAZOLAM. [Suspect]
     Active Substance: MIDAZOLAM
     Dosage: 4 MG/KG/HOUR, INFUSION, RESTARTED ON DAY 13
     Route: 065
  10. PHENYTOIN. [Concomitant]
     Active Substance: PHENYTOIN
     Indication: STATUS EPILEPTICUS
  11. CLOBAZAM. [Concomitant]
     Active Substance: CLOBAZAM
     Indication: EPILEPSY
  12. FENTANYL. [Concomitant]
     Active Substance: FENTANYL
     Indication: EPILEPSY
  13. ESLICARBAZEPINE [Concomitant]
     Active Substance: ESLICARBAZEPINE
     Indication: EPILEPSY
  14. PROPOFOL. [Concomitant]
     Active Substance: PROPOFOL
     Indication: EPILEPSY
  15. KETALAR [Suspect]
     Active Substance: KETAMINE HYDROCHLORIDE
     Indication: STATUS EPILEPTICUS
     Dosage: 5 MG/KG/HOUR, INFUSION, DAY NINE
     Route: 065
  16. KETALAR [Suspect]
     Active Substance: KETAMINE HYDROCHLORIDE
     Dosage: 4 MG/KG/HOUR, INFUSION, RESTARTED ON DAY 13
     Route: 065
  17. LORAZEPAM. [Concomitant]
     Active Substance: LORAZEPAM
     Indication: STATUS EPILEPTICUS
  18. CLONAZEPAM. [Concomitant]
     Active Substance: CLONAZEPAM
     Indication: EPILEPSY

REACTIONS (3)
  - Metabolic acidosis [Fatal]
  - Off label use [Recovered/Resolved]
  - Circulatory collapse [Fatal]
